FAERS Safety Report 10945631 (Version 1)
Quarter: 2015Q1

REPORT INFORMATION
  Report Type: Spontaneous
  Country: US (occurrence: None)
  Receive Date: 20150212
  Receipt Date: 20150212
  Transmission Date: 20150721
  Serious: No
  Sender: FDA-Public Use
  Company Number: TPA2011A00951

PATIENT
  Age: 42 Year
  Sex: Male
  Weight: 72.58 kg

DRUGS (6)
  1. LIPITOR [Concomitant]
     Active Substance: ATORVASTATIN CALCIUM
  2. VITAMIN D (ERGOCALCIFEROL) [Concomitant]
     Active Substance: ERGOCALCIFEROL
  3. COLCHICINE. [Concomitant]
     Active Substance: COLCHICINE
  4. ALTACE (RAMIPRIL) [Concomitant]
  5. ULORIC [Suspect]
     Active Substance: FEBUXOSTAT
     Indication: GOUT
     Route: 048
     Dates: start: 2011
  6. SYNTHROID [Concomitant]
     Active Substance: LEVOTHYROXINE SODIUM

REACTIONS (3)
  - Blood uric acid increased [None]
  - Blood creatinine increased [None]
  - Gout [None]

NARRATIVE: CASE EVENT DATE: 20110222
